FAERS Safety Report 9596603 (Version 2)
Quarter: 2014Q2

REPORT INFORMATION
  Report Type: Spontaneous
  Country: FR (occurrence: FR)
  Receive Date: 20131004
  Receipt Date: 20140421
  Transmission Date: 20141212
  Serious: Yes (Life-Threatening)
  Sender: FDA-Public Use
  Company Number: FR-PFIZER INC-2013280399

PATIENT
  Age: 15 Year
  Sex: Female

DRUGS (9)
  1. SOLU-MEDROL [Suspect]
     Dosage: 500 MG, SINGLE
     Route: 042
     Dates: start: 20130305, end: 20130305
  2. PARACETAMOL [Concomitant]
     Indication: PREMEDICATION
     Dosage: 2 G, SINGLE (IN THE MORNING)
     Route: 048
     Dates: start: 20130305, end: 20130305
  3. DIPRIVAN [Concomitant]
     Indication: INDUCTION OF ANAESTHESIA
     Dosage: UNK
     Dates: start: 20130305, end: 20130305
  4. ULTIVA [Concomitant]
     Indication: INDUCTION OF ANAESTHESIA
     Dosage: UNK
     Dates: start: 20130305, end: 20130305
  5. TRACRIUM [Concomitant]
     Indication: INDUCTION OF ANAESTHESIA
     Dosage: UNK
     Dates: start: 20130305, end: 20130305
  6. KETAMINE HYDROCHLORIDE [Concomitant]
     Indication: INDUCTION OF ANAESTHESIA
     Dosage: UNK
     Dates: start: 20130305, end: 20130305
  7. DROLEPTAN [Concomitant]
     Indication: INDUCTION OF ANAESTHESIA
     Dosage: UNK
     Dates: start: 20130305, end: 20130305
  8. AUGMENTIN [Concomitant]
     Dosage: 2 G, SINGLE
     Dates: start: 20130305, end: 20130305
  9. VENTOLINE [Concomitant]
     Indication: ASTHMA
     Dosage: AS NEEDED (RARELY)

REACTIONS (6)
  - Anaphylactic shock [Recovered/Resolved]
  - Urticaria [Recovered/Resolved]
  - Bronchospasm [Recovered/Resolved]
  - Respiratory distress [Recovered/Resolved]
  - Generalised oedema [Recovered/Resolved]
  - Hypotension [Recovered/Resolved]
